FAERS Safety Report 5810489-9 (Version None)
Quarter: 2008Q3

REPORT INFORMATION
  Report Type: 
  Country: None (occurrence: None)
  Receive Date: 20080715
  Receipt Date: 20080710
  Transmission Date: 20090109
  Serious: Yes (Death)
  Sender: FDA-Public Use
  Company Number: GB-ASTRAZENECA-2008GB01331

PATIENT
  Sex: Male

DRUGS (5)
  1. ATENOLOL [Suspect]
     Route: 048
  2. BISOPROLOL FUMARATE [Concomitant]
     Dosage: 2.5MG
  3. ORAL ANTIDIABETIC [Concomitant]
     Indication: TYPE 2 DIABETES MELLITUS
  4. ASPIRIN [Concomitant]
  5. STATIN NOT FURTHER SPECIFIED [Concomitant]

REACTIONS (1)
  - CARDIAC DEATH [None]
